FAERS Safety Report 19591151 (Version 1)
Quarter: 2021Q3

REPORT INFORMATION
  Report Type: Spontaneous
  Country: CN (occurrence: CN)
  Receive Date: 20210721
  Receipt Date: 20210721
  Transmission Date: 20211014
  Serious: Yes (Other)
  Sender: FDA-Public Use
  Company Number: CN-JNJFOC-20210730544

PATIENT

DRUGS (4)
  1. TOPAMAX [Suspect]
     Active Substance: TOPIRAMATE
     Indication: EPILEPSY
     Dosage: NATIONAL MEDICINE PERMISSION NUMBER H20020555?THE DOSE OF TOPIRAMATE TABLETS WAS 5?9MG/KG/DAY, DIVID
     Route: 048
  2. TOPAMAX [Suspect]
     Active Substance: TOPIRAMATE
     Dosage: AND THEN INCREASED BY 1?3MG/KG/DAY (DIVIDED INTO TWICE FOR MEDICATION) EVERY OTHER 1 OR 2 WEEKS UNTI
     Route: 048
  3. OXCARBAZEPINE. [Suspect]
     Active Substance: OXCARBAZEPINE
     Indication: EPILEPSY
     Dosage: NATIONAL MEDICINE PERMISSION NUMBER H20051518.?THE INITIAL DOSE OF OXCARBAZEPINE TABLETS WAS 8?10MG/
     Route: 048
  4. TOPAMAX [Suspect]
     Active Substance: TOPIRAMATE
     Dosage: AND THE DOSE ADJUSTMENT STARTED FROM 25MG EVERY NIGHT, MEDICATION FOR 1 WEEK,
     Route: 048

REACTIONS (3)
  - Rash [Unknown]
  - Somnolence [Unknown]
  - Altered state of consciousness [Unknown]
